FAERS Safety Report 4427512-9 (Version None)
Quarter: 2004Q3

REPORT INFORMATION
  Report Type: 
  Country: None (occurrence: None)
  Receive Date: 20040812
  Receipt Date: 20040728
  Transmission Date: 20050211
  Serious: Yes (Hospitalization)
  Sender: FDA-Public Use
  Company Number: 2004AP03972

PATIENT
  Age: 56 Year
  Sex: Female

DRUGS (4)
  1. IRESSA [Suspect]
     Indication: LUNG ADENOCARCINOMA
     Dosage: 250 MG DAILY PO
     Route: 048
     Dates: start: 20031110, end: 20040624
  2. LAMISIL [Concomitant]
  3. MUCOSTA [Concomitant]
  4. NORVASC [Concomitant]

REACTIONS (2)
  - LEUKOCYTOCLASTIC VASCULITIS [None]
  - SKIN NECROSIS [None]
